FAERS Safety Report 21002035 (Version 1)
Quarter: 2022Q2

REPORT INFORMATION
  Report Type: Spontaneous
  Country: US (occurrence: US)
  Receive Date: 20220624
  Receipt Date: 20220624
  Transmission Date: 20220720
  Serious: Yes (Other)
  Sender: FDA-Public Use
  Company Number: US-JNJFOC-20220635252

PATIENT
  Sex: Female

DRUGS (1)
  1. ELMIRON [Suspect]
     Active Substance: PENTOSAN POLYSULFATE SODIUM
     Indication: Cystitis interstitial
     Route: 048
     Dates: start: 2009

REACTIONS (5)
  - Toxicity to various agents [Unknown]
  - Dry eye [Unknown]
  - Vision blurred [Unknown]
  - Metamorphopsia [Unknown]
  - Delayed dark adaptation [Unknown]
